FAERS Safety Report 7116118-9 (Version None)
Quarter: 2010Q4

REPORT INFORMATION
  Report Type: 
  Country: None (occurrence: None)
  Receive Date: 20101122
  Receipt Date: 20101109
  Transmission Date: 20110411
  Serious: Yes (Other)
  Sender: FDA-Public Use
  Company Number: US-AMGEN-USASP2010004700

PATIENT

DRUGS (2)
  1. ENBREL [Suspect]
     Indication: RHEUMATOID ARTHRITIS
     Dates: start: 20100215, end: 20101001
  2. METHOTREXATE [Concomitant]
     Dosage: 1 MG, QWK
     Dates: start: 20101029

REACTIONS (5)
  - GAIT DISTURBANCE [None]
  - HYPOAESTHESIA [None]
  - LOCAL SWELLING [None]
  - MUSCULAR WEAKNESS [None]
  - PARAESTHESIA [None]
